FAERS Safety Report 7058148-1 (Version None)
Quarter: 2010Q4

REPORT INFORMATION
  Report Type: 
  Country: None (occurrence: None)
  Receive Date: 20101022
  Receipt Date: 20101021
  Transmission Date: 20110411
  Serious: Yes (Other)
  Sender: FDA-Public Use
  Company Number: US-BRISTOL-MYERS SQUIBB COMPANY-15345374

PATIENT
  Age: 12 Year
  Sex: Male

DRUGS (1)
  1. VM-26 [Suspect]
     Indication: ACUTE LYMPHOCYTIC LEUKAEMIA

REACTIONS (3)
  - CARDIAC FAILURE [None]
  - HYPERTENSION [None]
  - RETINAL HAEMORRHAGE [None]
